FAERS Safety Report 4890857-2 (Version None)
Quarter: 2006Q1

REPORT INFORMATION
  Report Type: 
  Country: None (occurrence: None)
  Receive Date: 20060125
  Receipt Date: 20060111
  Transmission Date: 20060701
  Serious: Yes (Hospitalization)
  Sender: FDA-Public Use
  Company Number: PHEH2006US00822

PATIENT
  Age: 81 Year
  Sex: Female

DRUGS (11)
  1. VOLTAREN [Suspect]
     Indication: OSTEOARTHRITIS
     Dosage: UNK, UNK
     Dates: start: 19980101
  2. RELAFEN [Concomitant]
     Indication: OSTEOARTHRITIS
     Dates: start: 19970101, end: 19980101
  3. LODINE [Concomitant]
     Indication: OSTEOARTHRITIS
     Dates: start: 19990101
  4. VIOXX [Concomitant]
     Indication: OSTEOARTHRITIS
     Dates: start: 19990101
  5. SYNTHROID [Concomitant]
  6. LOZOL [Concomitant]
  7. FOSAMAX [Concomitant]
  8. CELEBREX [Concomitant]
  9. DARVOCET-N 50 [Concomitant]
     Indication: OSTEOARTHRITIS
     Dates: start: 20000101
  10. LORCET-HD [Concomitant]
     Indication: OSTEOARTHRITIS
     Dates: start: 20000101
  11. LORTAB [Concomitant]
     Indication: OSTEOARTHRITIS
     Dates: start: 20000101

REACTIONS (5)
  - GASTROINTESTINAL HAEMORRHAGE [None]
  - HEPATIC CIRRHOSIS [None]
  - HEPATITIS TOXIC [None]
  - LIVER DISORDER [None]
  - VARICES OESOPHAGEAL [None]
